FAERS Safety Report 8997333 (Version 2)
Quarter: 2013Q1

REPORT INFORMATION
  Report Type: Report from Study
  Country: GB (occurrence: GB)
  Receive Date: 20130104
  Receipt Date: 20130128
  Transmission Date: 20140127
  Serious: Yes (Life-Threatening, Hospitalization)
  Sender: FDA-Public Use
  Company Number: GB-TEVA-373389USA

PATIENT
  Age: 81 Year
  Sex: Female
  Weight: 81.2 kg

DRUGS (2)
  1. TREANDA [Suspect]
     Indication: CHRONIC LYMPHOCYTIC LEUKAEMIA
     Route: 042
     Dates: start: 20120704, end: 20120807
  2. OFATUMUMAB [Suspect]
     Indication: CHRONIC LYMPHOCYTIC LEUKAEMIA
     Route: 042
     Dates: start: 20120704, end: 20120807

REACTIONS (2)
  - Encephalitis viral [Recovered/Resolved]
  - Electroencephalogram abnormal [Recovered/Resolved]
